FAERS Safety Report 15434129 (Version 1)
Quarter: 2018Q3

REPORT INFORMATION
  Report Type: Spontaneous
  Country: DE (occurrence: DE)
  Receive Date: 20180927
  Receipt Date: 20180927
  Transmission Date: 20181010
  Serious: Yes (Hospitalization, Other)
  Sender: FDA-Public Use
  Company Number: DE-TEVA-2018-DE-956248

PATIENT
  Age: 38 Year
  Sex: Male

DRUGS (3)
  1. BACLOFEN?RATIOPHARM 10 MG TABLETTEN [Suspect]
     Active Substance: BACLOFEN
     Indication: QUADRIPLEGIA
     Dosage: 45 MILLIGRAM DAILY;
     Dates: start: 20180709
  2. ERGENYL CHRONO [Concomitant]
     Active Substance: VALPROIC ACID
     Indication: EPILEPSY
     Dosage: 500 MILLIGRAM DAILY;
     Dates: start: 2003
  3. RISPERIDON [Concomitant]
     Active Substance: RISPERIDONE
     Dosage: 500 MILLIGRAM DAILY;

REACTIONS (3)
  - Laceration [Unknown]
  - Epilepsy [Recovered/Resolved]
  - Drug ineffective [Unknown]

NARRATIVE: CASE EVENT DATE: 20180917
